FAERS Safety Report 5355633-5 (Version None)
Quarter: 2007Q2

REPORT INFORMATION
  Report Type: 
  Country: None (occurrence: None)
  Receive Date: 20070613
  Receipt Date: 20070604
  Transmission Date: 20071010
  Serious: Yes (Other)
  Sender: FDA-Public Use
  Company Number: D0053476A

PATIENT
  Age: 40 Year
  Sex: Female

DRUGS (1)
  1. AMOCLAV [Suspect]
     Route: 048

REACTIONS (1)
  - DIARRHOEA HAEMORRHAGIC [None]
